FAERS Safety Report 12834783 (Version 1)
Quarter: 2016Q4

REPORT INFORMATION
  Report Type: Spontaneous
  Country: CA (occurrence: CA)
  Receive Date: 20161010
  Receipt Date: 20161010
  Transmission Date: 20170207
  Serious: Yes (Other)
  Sender: FDA-Public Use
  Company Number: CA-PFIZER INC-2016464807

PATIENT
  Age: 55 Year
  Sex: Female
  Weight: 48 kg

DRUGS (4)
  1. TECTA [Suspect]
     Active Substance: PANTOPRAZOLE MAGNESIUM
     Indication: GASTRIC ULCER
  2. DEXILANT [Concomitant]
     Active Substance: DEXLANSOPRAZOLE
     Dosage: UNK
  3. CYCLOBENZAPRINE [Concomitant]
     Active Substance: CYCLOBENZAPRINE
     Dosage: UNK
  4. TECTA [Suspect]
     Active Substance: PANTOPRAZOLE MAGNESIUM
     Indication: HELICOBACTER INFECTION
     Dosage: 40 MG, UNK
     Route: 065

REACTIONS (4)
  - Aphasia [Recovered/Resolved]
  - Nausea [Recovered/Resolved]
  - Speech disorder [Recovered/Resolved]
  - Vomiting [Recovered/Resolved]
